FAERS Safety Report 5368702-0 (Version None)
Quarter: 2007Q2

REPORT INFORMATION
  Report Type: 
  Country: None (occurrence: None)
  Receive Date: 20070625
  Receipt Date: 20070509
  Transmission Date: 20071010
  Serious: No
  Sender: FDA-Public Use
  Company Number: US-BRISTOL-MYERS SQUIBB COMPANY-13742077

PATIENT
  Sex: Male

DRUGS (6)
  1. ORENCIA [Suspect]
     Indication: RHEUMATOID ARTHRITIS
     Route: 042
     Dates: start: 20060907
  2. METHOTREXATE [Concomitant]
     Route: 030
  3. FOLIC ACID [Concomitant]
  4. ZANTAC [Concomitant]
  5. LESCOL [Concomitant]
  6. CARDIZEM [Concomitant]

REACTIONS (1)
  - DERMATITIS PSORIASIFORM [None]
